FAERS Safety Report 9820332 (Version 2)
Quarter: 2014Q2

REPORT INFORMATION
  Report Type: Report from Study
  Country: US (occurrence: US)
  Receive Date: 20140116
  Receipt Date: 20140620
  Transmission Date: 20141212
  Serious: Yes (Death, Hospitalization)
  Sender: FDA-Public Use
  Company Number: US-ALEXION-A201400004

PATIENT
  Sex: 0

DRUGS (2)
  1. SOLIRIS [Suspect]
     Indication: PAROXYSMAL NOCTURNAL HAEMOGLOBINURIA
     Dosage: 900 MG, Q2W
     Route: 042
     Dates: start: 20111130
  2. PROCRIT                            /00909301/ [Concomitant]
     Indication: PRODUCT USED FOR UNKNOWN INDICATION
     Route: 065

REACTIONS (10)
  - Death [Fatal]
  - Renal failure chronic [Unknown]
  - Hepatic failure [Unknown]
  - Jaundice [Unknown]
  - Epistaxis [Unknown]
  - Vomiting [Unknown]
  - Back pain [Unknown]
  - Cough [Unknown]
  - Asthenia [Unknown]
  - Treatment noncompliance [Unknown]
